FAERS Safety Report 8790303 (Version 8)
Quarter: 2013Q1

REPORT INFORMATION
  Report Type: Report from Study
  Country: FR (occurrence: FR)
  Receive Date: 20120914
  Receipt Date: 20130204
  Transmission Date: 20140127
  Serious: Yes (Hospitalization)
  Sender: FDA-Public Use
  Company Number: FR-MPIJNJ-2012-05776

PATIENT
  Sex: 0

DRUGS (11)
  1. VELCADE [Suspect]
     Indication: MANTLE CELL LYMPHOMA
     Dosage: 2.6 MG, CYCLIC
     Route: 058
     Dates: start: 20120717, end: 20120727
  2. MABTHERA [Suspect]
     Indication: MANTLE CELL LYMPHOMA
     Dosage: 750 MG, CYCLIC
     Route: 042
     Dates: start: 20120717, end: 20120717
  3. LEVACT [Suspect]
     Indication: MANTLE CELL LYMPHOMA
     Dosage: 180 MG, CYCLIC
     Route: 042
     Dates: start: 20120717, end: 20120718
  4. DEXAMETHASONE [Suspect]
     Indication: MANTLE CELL LYMPHOMA
     Dosage: 40 MG, CYCLIC
     Route: 042
     Dates: start: 20120718, end: 20120815
  5. BACTRIM [Suspect]
     Indication: PROPHYLAXIS
     Dosage: UNK UNK, 3/WEEK
     Dates: start: 20120711
  6. TAHOR [Concomitant]
     Indication: DYSLIPIDAEMIA
     Dosage: 40 MG, UNK
  7. METFORMIN [Concomitant]
     Indication: DIABETES MELLITUS
  8. PLAVIX                             /01220701/ [Concomitant]
     Indication: CEREBROVASCULAR ACCIDENT
     Dosage: UNK
     Dates: start: 20110101
  9. KEPPRA [Concomitant]
     Indication: CEREBROVASCULAR ACCIDENT
     Dosage: UNK
     Dates: start: 20110101
  10. LODOZ                              /01166101/ [Concomitant]
     Indication: HYPERTENSION
  11. ZELITREX                           /01269701/ [Concomitant]
     Indication: PROPHYLAXIS
     Dosage: UNK
     Dates: start: 20120711

REACTIONS (7)
  - Pyrexia [Not Recovered/Not Resolved]
  - Rash [Recovered/Resolved]
  - Renal failure [Recovered/Resolved]
  - Bone marrow failure [Recovered/Resolved]
  - Pneumonia [Recovered/Resolved]
  - Atrial fibrillation [Recovered/Resolved with Sequelae]
  - Thrombocytopenia [Recovered/Resolved]
